FAERS Safety Report 7387541-2 (Version None)
Quarter: 2011Q1

REPORT INFORMATION
  Report Type: 
  Country: None (occurrence: None)
  Receive Date: 20110331
  Receipt Date: 20110329
  Transmission Date: 20110831
  Serious: Yes (Other)
  Sender: FDA-Public Use
  Company Number: US-PFIZER INC-2011070294

PATIENT
  Sex: Female
  Weight: 57 kg

DRUGS (2)
  1. CHANTIX [Suspect]
     Dosage: 0.5 MG, 1X/DAY
     Dates: start: 20110301, end: 20110328
  2. CHANTIX [Suspect]
     Indication: SMOKING CESSATION THERAPY
     Dosage: 0.5 MG, 1X/DAY
     Route: 048
     Dates: start: 20110320, end: 20110301

REACTIONS (2)
  - DISORIENTATION [None]
  - SOMNAMBULISM [None]
